FAERS Safety Report 18400364 (Version 1)
Quarter: 2020Q4

REPORT INFORMATION
  Report Type: Spontaneous
  Country: US (occurrence: US)
  Receive Date: 20201019
  Receipt Date: 20201019
  Transmission Date: 20210114
  Serious: No
  Sender: FDA-Public Use
  Company Number: US-ALLERGAN-1943291US

PATIENT
  Age: 33 Year
  Sex: Female

DRUGS (7)
  1. ATIVAN [Concomitant]
     Active Substance: LORAZEPAM
  2. DOXYCYCLINE. [Concomitant]
     Active Substance: DOXYCYCLINE
     Indication: ACNE
  3. CYMBALTA [Concomitant]
     Active Substance: DULOXETINE HYDROCHLORIDE
  4. VRAYLAR [Suspect]
     Active Substance: CARIPRAZINE
     Dosage: 3 MG
     Dates: start: 201909
  5. LAMOTRIGINE. [Concomitant]
     Active Substance: LAMOTRIGINE
     Indication: SEIZURE
  6. LUNESTA [Concomitant]
     Active Substance: ESZOPICLONE
  7. VRAYLAR [Suspect]
     Active Substance: CARIPRAZINE
     Indication: BIPOLAR I DISORDER
     Dosage: 1.5 MG
     Route: 048
     Dates: start: 20191021

REACTIONS (6)
  - Sleep disorder [Unknown]
  - Tongue movement disturbance [Recovering/Resolving]
  - Hallucination [Recovered/Resolved]
  - Tardive dyskinesia [Recovering/Resolving]
  - Dyskinesia [Recovering/Resolving]
  - Restless legs syndrome [Unknown]

NARRATIVE: CASE EVENT DATE: 2019
